FAERS Safety Report 25748427 (Version 5)
Quarter: 2025Q4

REPORT INFORMATION
  Report Type: Report from Study
  Country: US (occurrence: US)
  Receive Date: 20250902
  Receipt Date: 20251030
  Transmission Date: 20260118
  Serious: Yes (Other)
  Sender: ACADIA PHARMACEUTICALS
  Company Number: US-ACADIA PHARMACEUTICALS INC.-ACA-2025-PIM-009615

PATIENT
  Age: 74 Year
  Sex: Male

DRUGS (6)
  1. NUPLAZID [Suspect]
     Active Substance: PIMAVANSERIN TARTRATE
     Indication: Parkinson^s disease psychosis
     Dosage: 34 MILLIGRAM, QD
     Route: 048
     Dates: start: 20250818, end: 20251016
  2. SINEMET [Concomitant]
     Active Substance: CARBIDOPA\LEVODOPA
     Dosage: 25/100, 1.5 TABLETS TID
  3. AZILECT [RASAGILINE] [Concomitant]
     Dosage: 1 MILLIGRAM, QD
  4. LIPITOR [Concomitant]
     Active Substance: ATORVASTATIN CALCIUM
  5. Nonax [Concomitant]
     Dosage: UNK
  6. SINEMET CR [Concomitant]
     Active Substance: CARBIDOPA\LEVODOPA
     Dosage: 50/200 THS

REACTIONS (5)
  - Hallucination [Not Recovered/Not Resolved]
  - Adverse drug reaction [Unknown]
  - Insomnia [Recovered/Resolved]
  - Drug ineffective [Recovered/Resolved]
  - Inappropriate schedule of product administration [Unknown]

NARRATIVE: CASE EVENT DATE: 20250801
